FAERS Safety Report 24562516 (Version 1)
Quarter: 2024Q4

REPORT INFORMATION
  Report Type: Spontaneous
  Country: US (occurrence: US)
  Receive Date: 20241029
  Receipt Date: 20241029
  Transmission Date: 20250115
  Serious: Yes (Other)
  Sender: ASTELLAS
  Company Number: US-ASTELLAS-2024-AER-014423

PATIENT
  Age: 90 Year
  Sex: Male

DRUGS (2)
  1. MYRBETRIQ [Suspect]
     Active Substance: MIRABEGRON
     Indication: Bladder spasm
     Route: 065
     Dates: start: 202408
  2. MYRBETRIQ [Suspect]
     Active Substance: MIRABEGRON
     Dosage: TAKES INTERMITTENTLY
     Route: 065

REACTIONS (2)
  - Cerebrovascular accident [Unknown]
  - Wrong technique in product usage process [Unknown]
